APPROVED DRUG PRODUCT: HISTAMINE PHOSPHATE
Active Ingredient: HISTAMINE PHOSPHATE
Strength: EQ 0.1MG BASE/ML
Dosage Form/Route: INJECTABLE;INJECTION
Application: N000734 | Product #003
Applicant: ELI LILLY AND CO
Approved: Approved Prior to Jan 1, 1982 | RLD: No | RS: No | Type: DISCN